FAERS Safety Report 20195269 (Version 2)
Quarter: 2021Q4

REPORT INFORMATION
  Report Type: Report from Study
  Country: HU (occurrence: HU)
  Receive Date: 20211216
  Receipt Date: 20211223
  Transmission Date: 20220303
  Serious: Yes (Hospitalization)
  Sender: FDA-Public Use
  Company Number: HU-AMGEN-HUNCT2021198403

PATIENT
  Age: 12 Year
  Sex: Male
  Weight: 65.3 kg

DRUGS (3)
  1. DENOSUMAB [Suspect]
     Active Substance: DENOSUMAB
     Indication: Osteogenesis imperfecta
     Dosage: 0.86 MILLILITER, Q6MO
     Route: 058
     Dates: start: 20181207
  2. CALCIUM [Suspect]
     Active Substance: CALCIUM
     Indication: Osteogenesis imperfecta
     Dosage: 500 MILLIGRAM
     Route: 048
     Dates: start: 20190606, end: 20211105
  3. VITAMIN D NOS [Concomitant]
     Active Substance: VITAMIN D NOS
     Indication: Osteogenesis imperfecta
     Dosage: 1000 INTERNATIONAL UNIT
     Route: 048
     Dates: start: 2018

REACTIONS (1)
  - Hypercalcaemia [Recovered/Resolved]

NARRATIVE: CASE EVENT DATE: 20211126
